FAERS Safety Report 7412250-0 (Version None)
Quarter: 2011Q2

REPORT INFORMATION
  Report Type: 
  Country: None (occurrence: None)
  Receive Date: 20110413
  Receipt Date: 20110406
  Transmission Date: 20111010
  Serious: Yes (Hospitalization, Other)
  Sender: FDA-Public Use
  Company Number: US-PFIZER INC-2011076370

PATIENT
  Age: 89 Year
  Sex: Female

DRUGS (2)
  1. VENLAFAXINE HCL [Suspect]
     Dosage: UNK
  2. EFFEXOR XR [Suspect]
     Dosage: UNK

REACTIONS (6)
  - PARALYSIS [None]
  - FALL [None]
  - DIZZINESS [None]
  - FOOT FRACTURE [None]
  - CONFUSIONAL STATE [None]
  - ASTHENIA [None]
